FAERS Safety Report 4789737-2 (Version None)
Quarter: 2005Q4

REPORT INFORMATION
  Report Type: 
  Country: None (occurrence: None)
  Receive Date: 20051006
  Receipt Date: 20050923
  Transmission Date: 20060501
  Serious: Yes (Hospitalization)
  Sender: FDA-Public Use
  Company Number: FR-AMGEN-UK151571

PATIENT
  Age: 63 Year
  Sex: Male

DRUGS (3)
  1. KINERET [Suspect]
     Indication: RHEUMATOID ARTHRITIS
     Route: 058
     Dates: start: 20040130
  2. METHOTREXATE [Concomitant]
     Route: 065
  3. KETOPROFEN [Concomitant]
     Route: 065

REACTIONS (11)
  - BACTERIAL INFECTION [None]
  - DIVERTICULITIS [None]
  - ENTEROCOCCAL INFECTION [None]
  - ESCHERICHIA INFECTION [None]
  - INTESTINAL PERFORATION [None]
  - PNEUMATURIA [None]
  - PNEUMONIA KLEBSIELLA [None]
  - POST PROCEDURAL COMPLICATION [None]
  - PSEUDOMONAS INFECTION [None]
  - URETHRAL DISORDER [None]
  - VESICAL FISTULA [None]
